FAERS Safety Report 11228485 (Version 2)
Quarter: 2015Q3

REPORT INFORMATION
  Report Type: Spontaneous
  Country: TR (occurrence: TR)
  Receive Date: 20150630
  Receipt Date: 20150717
  Transmission Date: 20151125
  Serious: Yes (Hospitalization, Other)
  Sender: FDA-Public Use
  Company Number: TR-ASTRAZENECA-2015SE61637

PATIENT
  Age: 67 Year
  Sex: Female

DRUGS (8)
  1. CRESTOR [Concomitant]
     Active Substance: ROSUVASTATIN CALCIUM
     Indication: HYPERCHOLESTEROLAEMIA
     Dosage: ONCE A DAY, START DATE: 5-6 YEARS AGO
     Route: 048
  2. METFORMIN [Concomitant]
     Active Substance: METFORMIN HYDROCHLORIDE
     Indication: TYPE 2 DIABETES MELLITUS
     Dosage: TWICE A DAY, START DATE: 3,5-4 YEARS AGO
     Route: 048
  3. PREKO [Concomitant]
     Indication: OEDEMA
     Dosage: 15 MG/850MG, START DATE: 3,5-4 YEARS AGO
     Route: 048
  4. BYETTA [Suspect]
     Active Substance: EXENATIDE
     Indication: WEIGHT DECREASED
     Dosage: TWO TIMES A DAY
     Route: 058
     Dates: start: 201506, end: 201506
  5. BELOC [Concomitant]
     Active Substance: METOPROLOL TARTRATE
     Indication: ARRHYTHMIA
     Dosage: ONCE A DAY,  START DATE: 2-2,5 YEARS AGO
     Route: 048
  6. BYETTA [Suspect]
     Active Substance: EXENATIDE
     Indication: TYPE 2 DIABETES MELLITUS
     Dosage: TWO TIMES A DAY
     Route: 058
     Dates: start: 201506, end: 201506
  7. ATACAND PLUS [Concomitant]
     Active Substance: CANDESARTAN CILEXETIL\HYDROCHLOROTHIAZIDE
     Indication: HYPERTENSION
     Dosage: 16 MG/12.5MG, ONCE A DAY,  START DATE: 4-5 YEARS AGO
     Route: 048
  8. PREKO [Concomitant]
     Indication: TYPE 2 DIABETES MELLITUS
     Dosage: 15 MG/850MG, START DATE: 3,5-4 YEARS AGO
     Route: 048

REACTIONS (6)
  - Nausea [Recovered/Resolved]
  - Vomiting [Recovered/Resolved]
  - Hypertension [Recovered/Resolved]
  - Hypotension [Recovered/Resolved]
  - Nervous system disorder [Recovered/Resolved]
  - Dehydration [Unknown]

NARRATIVE: CASE EVENT DATE: 201506
